FAERS Safety Report 4428106-1 (Version None)
Quarter: 2004Q3

REPORT INFORMATION
  Report Type: 
  Country: None (occurrence: None)
  Receive Date: 20040726
  Receipt Date: 20040513
  Transmission Date: 20050211
  Serious: No
  Sender: FDA-Public Use
  Company Number: USA030843412

PATIENT
  Age: 70 Year
  Sex: Female
  Weight: 73 kg

DRUGS (5)
  1. FORTEO [Suspect]
     Indication: OSTEOPOROSIS
     Dosage: 20 UG 1 DAY
     Dates: start: 20030722
  2. ASPIRIN [Concomitant]
  3. VITAMIN [Concomitant]
  4. CITRACAL (CALCIUM CITRATE) [Concomitant]
  5. GLUCOSAMINE CHONDROITIN [Concomitant]

REACTIONS (3)
  - ARTHRALGIA [None]
  - INJECTION SITE HAEMORRHAGE [None]
  - INJECTION SITE SWELLING [None]
